FAERS Safety Report 23930803 (Version 1)
Quarter: 2024Q2

REPORT INFORMATION
  Report Type: Report from Study
  Country: DE (occurrence: DE)
  Receive Date: 20240603
  Receipt Date: 20240603
  Transmission Date: 20240715
  Serious: Yes (Hospitalization)
  Sender: FDA-Public Use
  Company Number: DE-Merck Healthcare KGaA-2024012727

PATIENT
  Age: 42 Year
  Sex: Female
  Weight: 89 kg

DRUGS (4)
  1. CLADRIBINE [Suspect]
     Active Substance: CLADRIBINE
     Indication: Relapsing-remitting multiple sclerosis
     Dosage: YEAR ONE CYCLE ONE THERAPY.
     Route: 048
     Dates: start: 20200323, end: 20200327
  2. CLADRIBINE [Suspect]
     Active Substance: CLADRIBINE
     Dosage: YEAR ONE CYCLE TWO THERAPY.
     Route: 048
     Dates: start: 20200420, end: 20200424
  3. CLADRIBINE [Suspect]
     Active Substance: CLADRIBINE
     Dosage: YEAR TWO CYCLE ONE THERAPY.
     Route: 048
     Dates: start: 20210322, end: 20210326
  4. CLADRIBINE [Suspect]
     Active Substance: CLADRIBINE
     Dosage: YEAR TWO CYCLE TWO THERAPY.
     Route: 048
     Dates: start: 20210419, end: 20210423

REACTIONS (1)
  - Leiomyoma [Recovered/Resolved]
